FAERS Safety Report 8371195-2 (Version None)
Quarter: 2012Q2

REPORT INFORMATION
  Report Type: 
  Country: None (occurrence: None)
  Receive Date: 20120518
  Receipt Date: 20120426
  Transmission Date: 20120825
  Serious: Yes (Other)
  Sender: FDA-Public Use
  Company Number: PHHY2012BR011972

PATIENT
  Sex: Male

DRUGS (7)
  1. SIMVASTATIN [Suspect]
     Dosage: 40 MG, UNK
     Route: 048
  2. ASPIRIN [Concomitant]
     Dosage: 100 MG, UNK
  3. DIAMICRON MR [Concomitant]
     Dosage: 30 MG, UNK
  4. LOSARTAN POTASSIUM [Suspect]
     Dosage: 50 MG, UNK
     Route: 048
  5. ATENOLOL [Suspect]
     Dosage: 50 MG, UNK
     Route: 048
  6. METFORMIN HCL [Concomitant]
     Dosage: 750 MG, UNK
  7. GALVUS MET COMBIPACK [Suspect]
     Dosage: 1 DF(850/50MG) DAILY

REACTIONS (1)
  - NO ADVERSE EVENT [None]
